FAERS Safety Report 9713761 (Version 2)
Quarter: 2013Q4

REPORT INFORMATION
  Report Type: Spontaneous
  Country: AU (occurrence: AU)
  Receive Date: 20131126
  Receipt Date: 20131231
  Transmission Date: 20140711
  Serious: Yes (Other)
  Sender: FDA-Public Use
  Company Number: AU-ASTRAZENECA-2013SE83503

PATIENT
  Age: 69 Year
  Sex: Male

DRUGS (1)
  1. ZOLADEX [Suspect]
     Indication: PROSTATE CANCER
     Route: 058
     Dates: start: 20120305, end: 20131113

REACTIONS (14)
  - Malignant neoplasm progression [Unknown]
  - Blood urine present [Not Recovered/Not Resolved]
  - Pollakiuria [Unknown]
  - Urinary incontinence [Unknown]
  - Haemorrhage urinary tract [Unknown]
  - Micturition urgency [Unknown]
  - Nephrolithiasis [Unknown]
  - Asthenia [Not Recovered/Not Resolved]
  - Penis disorder [Not Recovered/Not Resolved]
  - Hernia [Unknown]
  - Breast swelling [Not Recovered/Not Resolved]
  - Loss of libido [Unknown]
  - Hot flush [Unknown]
  - Mood swings [Unknown]
